FAERS Safety Report 19228485 (Version 1)
Quarter: 2021Q2

REPORT INFORMATION
  Report Type: Report from Study
  Country: JP (occurrence: JP)
  Receive Date: 20210507
  Receipt Date: 20210507
  Transmission Date: 20210717
  Serious: Yes (Hospitalization, Other)
  Sender: FDA-Public Use
  Company Number: JP-AUROBINDO-AUR-APL-2021-018381

PATIENT
  Sex: Female

DRUGS (4)
  1. MELPHALAN. [Suspect]
     Active Substance: MELPHALAN
     Indication: CENTRAL NERVOUS SYSTEM LYMPHOMA
     Dosage: 140 MILLIGRAM/SQ. METER
     Route: 065
  2. RITUXIMAB. [Suspect]
     Active Substance: RITUXIMAB
     Indication: CENTRAL NERVOUS SYSTEM LYMPHOMA
     Dosage: 375 MILLIGRAM/SQ. METER
     Route: 065
  3. ETOPOSIDE. [Suspect]
     Active Substance: ETOPOSIDE
     Indication: CENTRAL NERVOUS SYSTEM LYMPHOMA
     Dosage: 400 MILLIGRAM/SQ. METER
     Route: 065
  4. RANIMUSTINE [Suspect]
     Active Substance: RANIMUSTINE
     Indication: CENTRAL NERVOUS SYSTEM LYMPHOMA
     Dosage: 250 MILLIGRAM/SQ. METER
     Route: 065

REACTIONS (9)
  - Pleural effusion [Recovered/Resolved]
  - Hypoxia [Recovered/Resolved]
  - Cardiac failure [Recovering/Resolving]
  - Off label use [Unknown]
  - Ventricular hypokinesia [Recovered/Resolved]
  - Haemolytic anaemia [Recovering/Resolving]
  - Acute kidney injury [Recovering/Resolving]
  - Pulmonary oedema [Recovered/Resolved]
  - Thrombotic microangiopathy [Recovering/Resolving]
